FAERS Safety Report 6610647-X (Version None)
Quarter: 2010Q1

REPORT INFORMATION
  Report Type: 
  Country: None (occurrence: None)
  Receive Date: 20100302
  Receipt Date: 20100224
  Transmission Date: 20100710
  Serious: Yes (Hospitalization)
  Sender: FDA-Public Use
  Company Number: A0844712A

PATIENT
  Age: 86 Year
  Sex: Female
  Weight: 77.3 kg

DRUGS (6)
  1. ZANTAC [Suspect]
     Indication: ANTACID THERAPY
     Dosage: 150MG UNKNOWN
     Route: 065
     Dates: start: 20091128, end: 20091203
  2. PLAVIX [Suspect]
     Route: 048
  3. NEXIUM [Suspect]
     Indication: ANTACID THERAPY
     Route: 065
     Dates: start: 20050101, end: 20090101
  4. ATORVASTATIN CALCIUM [Concomitant]
  5. DETROL [Concomitant]
     Dates: start: 20080101
  6. ASPIRIN [Concomitant]
     Dates: end: 20050101

REACTIONS (9)
  - CONFUSIONAL STATE [None]
  - ERYTHEMA [None]
  - FEELING ABNORMAL [None]
  - HYPERSENSITIVITY [None]
  - LOSS OF CONSCIOUSNESS [None]
  - MONOPLEGIA [None]
  - RASH GENERALISED [None]
  - URTICARIA [None]
  - VOMITING [None]
